FAERS Safety Report 8807086 (Version 3)
Quarter: 2015Q1

REPORT INFORMATION
  Report Type: Report from Study
  Country: US (occurrence: US)
  Receive Date: 20120925
  Receipt Date: 20150322
  Transmission Date: 20150721
  Serious: Yes (Death)
  Sender: FDA-Public Use
  Company Number: US-ROCHE-1096738

PATIENT
  Sex: Female

DRUGS (12)
  1. CYCLOPHOSPHAMIDE. [Concomitant]
     Active Substance: CYCLOPHOSPHAMIDE
  2. FOLINIC ACID [Concomitant]
     Active Substance: LEUCOVORIN
  3. AVASTIN [Suspect]
     Active Substance: BEVACIZUMAB
     Indication: COLON CANCER
     Dosage: 2 TIMES A WEEK FOR 6 WEEKS  13/OCT/2008
     Route: 065
     Dates: start: 20081013
  4. IMATINIB [Concomitant]
     Active Substance: IMATINIB
  5. OXALIPLATIN. [Concomitant]
     Active Substance: OXALIPLATIN
  6. IRINOTECAN [Concomitant]
     Active Substance: IRINOTECAN
  7. CYTOXAN [Concomitant]
     Active Substance: CYCLOPHOSPHAMIDE
  8. 5-FU [Concomitant]
     Active Substance: FLUOROURACIL
  9. LEUCOVORIN [Concomitant]
     Active Substance: LEUCOVORIN
     Route: 042
  10. GLEEVEC [Concomitant]
     Active Substance: IMATINIB MESYLATE
     Route: 048
  11. IMATINIB [Concomitant]
     Active Substance: IMATINIB
  12. AVASTIN [Suspect]
     Active Substance: BEVACIZUMAB
     Indication: METASTASES TO LUNG
     Route: 042

REACTIONS (8)
  - Disease progression [Unknown]
  - Nausea [Unknown]
  - Vomiting [Unknown]
  - Fatigue [Unknown]
  - Oral pain [Unknown]
  - Epistaxis [Unknown]
  - Death [Fatal]
  - Gingival pain [Unknown]
